FAERS Safety Report 19727321 (Version 2)
Quarter: 2021Q3

REPORT INFORMATION
  Report Type: Spontaneous
  Country: JP (occurrence: JP)
  Receive Date: 20210820
  Receipt Date: 20210914
  Transmission Date: 20211014
  Serious: Yes (Hospitalization, Other)
  Sender: FDA-Public Use
  Company Number: JP-GLAXOSMITHKLINE-JP2021JPN161473

PATIENT
  Age: 52 Year
  Sex: Female
  Weight: 55.5 kg

DRUGS (2)
  1. CARBOCISTEINE TABLETS [Concomitant]
     Active Substance: CARBOCYSTEINE
     Indication: ATELECTASIS
     Dosage: 1 DF, TID
     Route: 048
     Dates: start: 20210511, end: 20210711
  2. RELVAR ELLIPTA [Suspect]
     Active Substance: FLUTICASONE FUROATE\VILANTEROL TRIFENATATE
     Indication: ASTHMA
     Dosage: 100 ?G, QD, 1 INHALATION PER DOSE
     Route: 055
     Dates: start: 20210526, end: 20210728

REACTIONS (3)
  - Pyrexia [Recovered/Resolved]
  - Pneumonia [Recovering/Resolving]
  - Sputum purulent [Recovered/Resolved]

NARRATIVE: CASE EVENT DATE: 20210530
